FAERS Safety Report 5977701-7 (Version None)
Quarter: 2008Q4

REPORT INFORMATION
  Report Type: 
  Country: None (occurrence: None)
  Receive Date: 20081203
  Receipt Date: 20081126
  Transmission Date: 20090506
  Serious: Yes (Life-Threatening, Hospitalization)
  Sender: FDA-Public Use
  Company Number: FR-ROCHE-599676

PATIENT
  Age: 41 Year
  Sex: Male

DRUGS (10)
  1. CYMEVAN [Suspect]
     Indication: INFECTION
     Route: 042
     Dates: start: 20080612
  2. INIPOMP [Concomitant]
     Route: 048
  3. PROGRAF [Concomitant]
     Route: 048
  4. FOSCAVIR [Concomitant]
     Dosage: DOSING REGIMEN: 6G/25 ML
     Route: 042
  5. AVLOCARDYL [Concomitant]
  6. SOLUPRED [Concomitant]
  7. XANAX [Concomitant]
  8. STABLON [Concomitant]
  9. NEURONTIN [Concomitant]
  10. AMLOD [Concomitant]

REACTIONS (3)
  - PANCYTOPENIA [None]
  - SEPSIS [None]
  - SEPTIC SHOCK [None]
